FAERS Safety Report 11422351 (Version 4)
Quarter: 2016Q4

REPORT INFORMATION
  Report Type: Spontaneous
  Country: US (occurrence: US)
  Receive Date: 20150827
  Receipt Date: 20161109
  Transmission Date: 20170206
  Serious: Yes (Hospitalization, Other)
  Sender: FDA-Public Use
  Company Number: US-PFIZER INC-2015214404

PATIENT
  Age: 45 Year
  Sex: Female
  Weight: 71 kg

DRUGS (21)
  1. LISINOPRIL. [Concomitant]
     Active Substance: LISINOPRIL
     Dosage: 20 MG, 2X/DAY (TWICE DAILY)
     Route: 048
  2. PRAVASTATIN. [Concomitant]
     Active Substance: PRAVASTATIN
     Indication: HYPERLIPIDAEMIA
     Dosage: 40 MG, 1X/DAY (ONCE DAILY AT BEDTIME)
  3. ACETYLSALICYLIC ACID [Concomitant]
     Active Substance: ASPIRIN
     Dosage: 81 MG, DAILY (ONCE DAILY)
  4. VITAMIN D2 [Concomitant]
     Active Substance: ERGOCALCIFEROL
     Dosage: 1 DF, UNK (50, 000 UNIT, TAKE ONE CAPSULE BY MOUTH TWICE A DAY ONCE A WEEK ON MONDAY)
  5. PROGRAF [Concomitant]
     Active Substance: TACROLIMUS\TACROLIMUS ANHYDROUS
     Dosage: UNK
  6. CITRACAL PLUS D [Concomitant]
     Dosage: 1 DF, DAILY (CALCIUM CITRACAL/CHOLECALCIFEROL; 250/ 200)
  7. LANTUS [Concomitant]
     Active Substance: INSULIN GLARGINE
     Dosage: UNK UNK, 1X/DAY (29 UNITS AT BEDTIME)
  8. ACETAMINOPHEN. [Concomitant]
     Active Substance: ACETAMINOPHEN
     Dosage: 500 MG, AS NEEDED
  9. CHLORTHALIDONE. [Concomitant]
     Active Substance: CHLORTHALIDONE
     Indication: HYPERTENSION
     Dosage: UNK UNK, DAILY (25 MG TABLET 0.5 TABLET BY MOUTH DAILY)
     Route: 048
  10. DOXAZOSIN [Concomitant]
     Active Substance: DOXAZOSIN\DOXAZOSIN MESYLATE
     Dosage: 4 MG, DAILY
     Route: 048
  11. LOSARTAN HYDROCHLOROTHIAZIDE [Concomitant]
     Active Substance: HYDROCHLOROTHIAZIDE\LOSARTAN POTASSIUM
     Dosage: 1 DF, DAILY (LOSARTAN 100 MG/HYDROCHLOROTHIAZIDE 25 MG)
     Route: 048
  12. MAGNESIUM OXIDE. [Concomitant]
     Active Substance: MAGNESIUM OXIDE
     Dosage: 1 DF, DAILY
  13. NOVOLOG [Concomitant]
     Active Substance: INSULIN ASPART
  14. RAPAMUNE [Suspect]
     Active Substance: SIROLIMUS
     Indication: PROPHYLAXIS AGAINST TRANSPLANT REJECTION
     Dosage: 3 MG, DAILY
     Route: 048
  15. METOPROLOL SUCCINATE. [Concomitant]
     Active Substance: METOPROLOL SUCCINATE
     Dosage: 100 MG, 2X/DAY
  16. EDECRIN [Concomitant]
     Active Substance: ETHACRYNIC ACID
     Dosage: 25 MG, UNK (TWO TAB TWICE DAILY UNTIL YOU LOSE 5 POUNDS THEN DECREASE TO TWO TABLETS ONCE DAILY)
  17. ELIQUIS [Concomitant]
     Active Substance: APIXABAN
     Dosage: 2.5 MG, 2X/DAY (TWICE DAILY)
  18. CLONIDINE. [Concomitant]
     Active Substance: CLONIDINE
     Dosage: 0.1 MG, UNK (24 HR WEEKLY)
     Route: 062
  19. RAPAMUNE [Suspect]
     Active Substance: SIROLIMUS
     Indication: IMMUNOSUPPRESSION
  20. METOPROLOL. [Concomitant]
     Active Substance: METOPROLOL
     Dosage: UNK
  21. TACROLIMUS. [Concomitant]
     Active Substance: TACROLIMUS
     Dosage: 8 MG, 2X/DAY (EVERY 12 HOURS)
     Route: 048

REACTIONS (12)
  - Diarrhoea [Unknown]
  - Impaired work ability [Unknown]
  - Drug ineffective for unapproved indication [Unknown]
  - Malaise [Unknown]
  - Hypertension [Unknown]
  - Abdominal distension [Unknown]
  - Oedema peripheral [Recovering/Resolving]
  - Pericardial effusion [Unknown]
  - Diabetes mellitus [Unknown]
  - Cardiac failure [Unknown]
  - Spinal cord injury [Unknown]
  - Sleep apnoea syndrome [Unknown]

NARRATIVE: CASE EVENT DATE: 20100930
